FAERS Safety Report 6765890-6 (Version None)
Quarter: 2010Q2

REPORT INFORMATION
  Report Type: 
  Country: None (occurrence: None)
  Receive Date: 20100611
  Receipt Date: 20100608
  Transmission Date: 20101027
  Serious: Yes (Death)
  Sender: FDA-Public Use
  Company Number: PHHY2010NL36842

PATIENT
  Age: 87 Year
  Sex: Female

DRUGS (1)
  1. EXELON [Suspect]
     Indication: PARKINSON'S DISEASE
     Dosage: UNK
     Route: 062

REACTIONS (1)
  - CARDIAC ARREST [None]
